FAERS Safety Report 9186647 (Version 2)
Quarter: 2013Q4

REPORT INFORMATION
  Report Type: Report from Study
  Country: GB (occurrence: GB)
  Receive Date: 20130325
  Receipt Date: 20131126
  Transmission Date: 20140711
  Serious: Yes (Hospitalization)
  Sender: FDA-Public Use
  Company Number: GB-SHIRE-SPV1-2011-00481

PATIENT
  Age: 52 Year
  Sex: Female

DRUGS (1)
  1. ICATIBANT [Suspect]
     Indication: HEREDITARY ANGIOEDEMA
     Dosage: 30 MG, UNKNOWN
     Route: 058

REACTIONS (1)
  - Angioedema [Recovered/Resolved]
